FAERS Safety Report 15531200 (Version 1)
Quarter: 2018Q4

REPORT INFORMATION
  Report Type: Spontaneous
  Country: US (occurrence: US)
  Receive Date: 20181019
  Receipt Date: 20181019
  Transmission Date: 20190205
  Serious: No
  Sender: FDA-Public Use
  Company Number: US-TEVA-2018-US-964114

PATIENT
  Sex: Male

DRUGS (1)
  1. COPAXONE [Suspect]
     Active Substance: GLATIRAMER ACETATE
     Route: 065
     Dates: start: 2018

REACTIONS (4)
  - Device issue [Unknown]
  - Injection site abscess [Unknown]
  - Blister rupture [Unknown]
  - Blister [Unknown]

NARRATIVE: CASE EVENT DATE: 20180904
